FAERS Safety Report 6411409-9 (Version None)
Quarter: 2009Q4

REPORT INFORMATION
  Report Type: 
  Country: None (occurrence: None)
  Receive Date: 20091023
  Receipt Date: 20091017
  Transmission Date: 20100525
  Serious: Yes (Other)
  Sender: FDA-Public Use
  Company Number: US-ELI_LILLY_AND_COMPANY-US200908003979

PATIENT
  Sex: Male
  Weight: 100.68 kg

DRUGS (22)
  1. BYETTA [Suspect]
     Indication: TYPE 2 DIABETES MELLITUS
     Dosage: 5 UG, 2/D
     Dates: start: 20070814, end: 20070914
  2. BYETTA [Suspect]
     Dosage: 10 UG, 2/D
     Route: 058
     Dates: start: 20070915, end: 20090727
  3. POTASSIUM CHLORIDE [Concomitant]
     Dosage: 20 MEQ, DAILY (1/D)
  4. NEXIUM [Concomitant]
     Indication: GASTROOESOPHAGEAL REFLUX DISEASE
     Dosage: 40 MG, DAILY (1/D)
     Dates: start: 20070827, end: 20090212
  5. ALLOPURINOL [Concomitant]
     Indication: HYPERURICAEMIA
     Dosage: 300 MG, DAILY (1/D)
     Dates: start: 20080715
  6. ACTOS [Concomitant]
     Indication: DIABETES MELLITUS
     Dosage: 45 MG, DAILY (1/D)
  7. ACTOS [Concomitant]
     Dosage: 30 MG, UNK
     Route: 048
     Dates: end: 20090727
  8. RIBAVIRIN [Concomitant]
     Dosage: 600 MG, 2/D
  9. PROCRIT [Concomitant]
     Dosage: 40000 U, WEEKLY (1/W)
  10. PEGINTERFERON ALFA-2A [Concomitant]
     Dosage: 180 UG, WEEKLY (1/W)
  11. NEUPOGEN [Concomitant]
     Dosage: 300 UG, WEEKLY (1/W)
  12. MULTI-VITAMIN [Concomitant]
     Dosage: UNK, DAILY (1/D)
  13. VITAMIN B COMPLEX CAP [Concomitant]
     Dosage: UNK, DAILY (1/D)
  14. CALCIUM [Concomitant]
     Dosage: 600 MG, DAILY (1/D)
  15. VITAMIN D [Concomitant]
     Dosage: UNK, DAILY (1/D)
  16. GARLIC [Concomitant]
     Dosage: 1000 MG, DAILY (1/D)
  17. CRANBERRY [Concomitant]
     Dosage: 1680 MG, DAILY (1/D)
  18. FISH OIL [Concomitant]
     Dosage: 1000 MG, DAILY (1/D)
  19. VITAMIN E /001105/ [Concomitant]
     Dosage: 800 MG, DAILY (1/D)
  20. METFORMIN HCL [Concomitant]
     Indication: DIABETES MELLITUS
     Dosage: 500 MG, UNK
     Route: 048
     Dates: start: 20070908, end: 20090727
  21. VERAPAMIL [Concomitant]
     Indication: BLOOD PRESSURE INCREASED
     Dosage: 240 MG, UNK
     Route: 048
     Dates: start: 20070718, end: 20090127
  22. AVAPRO [Concomitant]
     Indication: BLOOD PRESSURE INCREASED
     Dates: start: 20070720, end: 20090722

REACTIONS (5)
  - ACUTE HEPATIC FAILURE [None]
  - HEPATIC STEATOSIS [None]
  - LYMPHADENOPATHY [None]
  - NON-HODGKIN'S LYMPHOMA STAGE III [None]
  - SPLENOMEGALY [None]
